FAERS Safety Report 5212814-9 (Version None)
Quarter: 2007Q1

REPORT INFORMATION
  Report Type: 
  Country: None (occurrence: None)
  Receive Date: 20070118
  Receipt Date: 20070118
  Transmission Date: 20070707
  Serious: Yes (Other)
  Sender: FDA-Public Use
  Company Number: None

PATIENT

DRUGS (2)
  1. ZYPREXA [Suspect]
     Dosage: TABLET
  2. ZOFRAN [Suspect]
     Dosage: INJECTABLE

REACTIONS (4)
  - DRUG DISPENSING ERROR [None]
  - DRUG DOSE OMISSION [None]
  - MEDICATION ERROR [None]
  - WRONG DRUG ADMINISTERED [None]
